FAERS Safety Report 17803416 (Version 1)
Quarter: 2020Q2

REPORT INFORMATION
  Report Type: Report from Study
  Country: US (occurrence: US)
  Receive Date: 20200519
  Receipt Date: 20200519
  Transmission Date: 20200714
  Serious: No
  Sender: FDA-Public Use
  Company Number: US-KYOWAKIRIN-2020BKK007762

PATIENT

DRUGS (2)
  1. CRYSVITA [Suspect]
     Active Substance: BUROSUMAB-TWZA
     Indication: PRODUCT USED FOR UNKNOWN INDICATION
     Dosage: 80 MG (3 INJECTIONS), EVERY 28 DAYS
     Route: 058
     Dates: start: 20190719
  2. CRYSVITA [Suspect]
     Active Substance: BUROSUMAB-TWZA
     Dosage: 80 MG (3 INJECTIONS), EVERY 28 DAYS
     Route: 058
     Dates: start: 20190719

REACTIONS (1)
  - Injection site bruising [Not Recovered/Not Resolved]
